FAERS Safety Report 8081528-2 (Version None)
Quarter: 2012Q1

REPORT INFORMATION
  Report Type: 
  Country: None (occurrence: None)
  Receive Date: 20120130
  Receipt Date: 20120124
  Transmission Date: 20120608
  Serious: Yes (Hospitalization, Other)
  Sender: FDA-Public Use
  Company Number: SE-PFIZER INC-2011034959

PATIENT
  Age: 84 Year
  Sex: Female

DRUGS (23)
  1. RAMIPRIL [Suspect]
     Indication: OEDEMA DUE TO CARDIAC DISEASE
  2. OXAZEPAM [Concomitant]
     Dosage: UNK
  3. LOPERAMIDE [Concomitant]
     Dosage: UNK
  4. RAMIPRIL [Suspect]
     Indication: CARDIAC FAILURE
     Dosage: 2.5 MG, 1X/DAY
     Route: 048
     Dates: end: 20100919
  5. RAMIPRIL [Suspect]
  6. RAMIPRIL [Suspect]
  7. METOPROLOL SUCCINATE [Suspect]
     Indication: CARDIAC FAILURE
     Dosage: 25 MG, 1X/DAY
     Route: 048
     Dates: end: 20100919
  8. METOPROLOL SUCCINATE [Suspect]
  9. METOPROLOL SUCCINATE [Suspect]
     Indication: OEDEMA DUE TO CARDIAC DISEASE
  10. METOPROLOL SUCCINATE [Suspect]
     Indication: MYOCARDIAL OEDEMA
  11. KALCIPOS [Concomitant]
     Dosage: UNK
  12. IMDUR [Concomitant]
  13. RAMIPRIL [Suspect]
  14. FUROSEMIDE [Concomitant]
     Dosage: UNK
  15. RAMIPRIL [Suspect]
     Indication: MYOCARDIAL OEDEMA
     Dosage: 1.25 MG, 1X/DAY
     Route: 048
     Dates: start: 20100919
  16. METOPROLOL SUCCINATE [Suspect]
  17. ESOMEPRAZOLE MAGNESIUM [Concomitant]
     Dosage: UNK
  18. NITROMEX [Concomitant]
     Dosage: UNK
  19. METOPROLOL SUCCINATE [Suspect]
  20. ACETAMINOPHEN [Concomitant]
     Dosage: UNK
  21. PREDNISOLONE [Concomitant]
     Dosage: UNK
  22. FOSAMAX [Concomitant]
     Dosage: UNK
  23. ASPIRIN [Concomitant]
     Dosage: UNK

REACTIONS (3)
  - OVERDOSE [None]
  - HYPOTENSION [None]
  - ERYSIPELAS [None]
